FAERS Safety Report 5957171-5 (Version None)
Quarter: 2008Q4

REPORT INFORMATION
  Report Type: 
  Country: None (occurrence: None)
  Receive Date: 20081117
  Receipt Date: 20081117
  Transmission Date: 20090506
  Serious: Yes (Other)
  Sender: FDA-Public Use
  Company Number: None

PATIENT
  Age: 28 Year
  Sex: Female
  Weight: 99.7913 kg

DRUGS (2)
  1. TOPAMAX [Suspect]
     Indication: ANGLE CLOSURE GLAUCOMA
     Dosage: 25MG HS PO
     Route: 048
     Dates: start: 20081102, end: 20081109
  2. TOPAMAX [Suspect]
     Indication: MYOPIA
     Dosage: 25MG HS PO
     Route: 048
     Dates: start: 20081102, end: 20081109

REACTIONS (3)
  - ANGLE CLOSURE GLAUCOMA [None]
  - MYOPIA [None]
  - OFF LABEL USE [None]
